FAERS Safety Report 14783918 (Version 1)
Quarter: 2018Q2

REPORT INFORMATION
  Report Type: Spontaneous
  Country: IT (occurrence: IT)
  Receive Date: 20180420
  Receipt Date: 20180420
  Transmission Date: 20180711
  Serious: Yes (Hospitalization, Other)
  Sender: FDA-Public Use
  Company Number: IT-MACLEODS PHARMACEUTICALS US LTD-MAC2018012752

PATIENT

DRUGS (2)
  1. LEVOFLOXACIN. [Suspect]
     Active Substance: LEVOFLOXACIN
     Indication: CHRONIC OBSTRUCTIVE PULMONARY DISEASE
     Dosage: 1500 MG, QD
     Route: 065
     Dates: start: 20170515, end: 20170522
  2. BECLOMETASONE [Concomitant]
     Active Substance: BECLOMETHASONE DIPROPIONATE
     Indication: CHRONIC OBSTRUCTIVE PULMONARY DISEASE
     Dosage: 168 ?G, QD, INHALED, INHALATION
     Route: 055
     Dates: start: 20170401

REACTIONS (3)
  - Toxicity to various agents [Recovering/Resolving]
  - Chorea [Recovering/Resolving]
  - Ballismus [Recovering/Resolving]

NARRATIVE: CASE EVENT DATE: 20170517
